FAERS Safety Report 19204439 (Version 1)
Quarter: 2021Q2

REPORT INFORMATION
  Report Type: Spontaneous
  Country: ES (occurrence: ES)
  Receive Date: 20210503
  Receipt Date: 20210503
  Transmission Date: 20210717
  Serious: Yes (Hospitalization)
  Sender: FDA-Public Use
  Company Number: ES-MSNLABS-2021MSNLIT00106

PATIENT

DRUGS (22)
  1. DIGOXIN. [Suspect]
     Active Substance: DIGOXIN
     Dosage: 0.25 MG
     Route: 065
  2. FLUTICASONE. [Suspect]
     Active Substance: FLUTICASONE
     Indication: CHRONIC OBSTRUCTIVE PULMONARY DISEASE
     Route: 065
  3. ATORVASTATIN TABLETS 20MG [Suspect]
     Active Substance: ATORVASTATIN
     Indication: DYSLIPIDAEMIA
     Dosage: 20 MG, PER DAY
     Route: 065
  4. CARVEDILOL. [Suspect]
     Active Substance: CARVEDILOL
     Indication: PRODUCT USED FOR UNKNOWN INDICATION
     Dosage: 3.13 MG/DAY DEPENDING ON BLOOD PRESSURE
     Route: 065
  5. LEVOTHYROXINE. [Suspect]
     Active Substance: LEVOTHYROXINE
     Indication: HYPOTHYROIDISM
     Dosage: 75 UG, PER DAY
     Route: 065
  6. TAMSULOSIN HYDROCHLORIDE. [Suspect]
     Active Substance: TAMSULOSIN HYDROCHLORIDE
     Indication: PRODUCT USED FOR UNKNOWN INDICATION
     Dosage: 0.4 MG, PER DAY
     Route: 065
  7. SALBUTAMOL [Suspect]
     Active Substance: ALBUTEROL
     Indication: DYSPNOEA
     Route: 065
  8. AMIODARONE HYDROCHLORIDE. [Suspect]
     Active Substance: AMIODARONE HYDROCHLORIDE
     Indication: VENTRICULAR TACHYCARDIA
     Route: 065
  9. FUROSEMIDE. [Suspect]
     Active Substance: FUROSEMIDE
     Route: 042
  10. BISOPROLOL FUMARATE. [Suspect]
     Active Substance: BISOPROLOL FUMARATE
     Indication: CARDIAC FAILURE CONGESTIVE
     Dosage: 1.25 MG, 2X PER DAY
     Route: 065
  11. ENALAPRIL [Suspect]
     Active Substance: ENALAPRIL
     Indication: CARDIAC FAILURE CONGESTIVE
     Dosage: 2.5 MG, PER DAY
     Route: 065
  12. EPLERENONE. [Suspect]
     Active Substance: EPLERENONE
     Indication: PRODUCT USED FOR UNKNOWN INDICATION
     Route: 065
  13. SALMETEROL [Suspect]
     Active Substance: SALMETEROL
     Indication: CHRONIC OBSTRUCTIVE PULMONARY DISEASE
     Route: 065
  14. TIOTROPIUM [Suspect]
     Active Substance: TIOTROPIUM
     Indication: CHRONIC OBSTRUCTIVE PULMONARY DISEASE
     Dosage: 18 MCG, PER DAY
     Route: 065
  15. MORPHINE [Suspect]
     Active Substance: MORPHINE
     Indication: DYSPNOEA
     Dosage: IF NEEDED
     Route: 065
  16. ALLOPURINOL. [Suspect]
     Active Substance: ALLOPURINOL
     Indication: HYPERURICAEMIA
     Dosage: 300 MG, PER DAY
     Route: 065
  17. LEVOSIMENDAN [Suspect]
     Active Substance: LEVOSIMENDAN
     Indication: CARDIAC FAILURE CONGESTIVE
     Route: 065
  18. SALMETEROL / FLUTICASONE [Suspect]
     Active Substance: FLUTICASONE PROPIONATE\SALMETEROL XINAFOATE
     Indication: DYSPNOEA
     Dosage: 2 DF 25MCG/125MCG, 2X PER DAY
     Route: 065
  19. EPLERENONE. [Suspect]
     Active Substance: EPLERENONE
     Route: 065
  20. DIGOXIN. [Suspect]
     Active Substance: DIGOXIN
     Indication: CARDIAC FAILURE CONGESTIVE
     Route: 065
  21. FUROSEMIDE. [Suspect]
     Active Substance: FUROSEMIDE
     Indication: PRODUCT USED FOR UNKNOWN INDICATION
     Dosage: 120 MG, PER DAY
     Route: 065
  22. ACENOCOUMAROL [Suspect]
     Active Substance: ACENOCOUMAROL
     Indication: ARRHYTHMIA
     Route: 065

REACTIONS (5)
  - Drug ineffective [Unknown]
  - Constipation [Recovering/Resolving]
  - Hypotension [Unknown]
  - Hypothyroidism [Unknown]
  - Off label use [Unknown]
